FAERS Safety Report 16185404 (Version 1)
Quarter: 2019Q2

REPORT INFORMATION
  Report Type: Spontaneous
  Country: US (occurrence: US)
  Receive Date: 20190411
  Receipt Date: 20190411
  Transmission Date: 20190711
  Serious: No
  Sender: FDA-Public Use
  Company Number: US-BAYER-2019-072771

PATIENT
  Sex: Male

DRUGS (1)
  1. ALEVE [Suspect]
     Active Substance: NAPROXEN SODIUM
     Indication: ARTHRITIS
     Dosage: TAKING 2 TO 3 TABLETS EVERY 12 HOURS
     Route: 048

REACTIONS (2)
  - Incorrect dosage administered [Unknown]
  - Product use in unapproved indication [Unknown]
